FAERS Safety Report 5795664-4 (Version None)
Quarter: 2008Q2

REPORT INFORMATION
  Report Type: 
  Country: None (occurrence: None)
  Receive Date: 20080630
  Receipt Date: 20080623
  Transmission Date: 20081010
  Serious: Yes (Disabling)
  Sender: FDA-Public Use
  Company Number: GB-PFIZER INC-2008052911

PATIENT
  Age: 45 Year
  Sex: Female

DRUGS (5)
  1. LYRICA [Suspect]
     Indication: EPILEPSY
     Route: 048
     Dates: start: 20080401, end: 20080501
  2. CLIMAGEST [Concomitant]
     Route: 048
  3. LEVETIRACETAM [Concomitant]
     Route: 048
  4. TEGRETOL [Concomitant]
     Route: 048
  5. VITAMIN B COMPLEX CAP [Concomitant]
     Route: 048

REACTIONS (1)
  - PERIPHERAL SENSORIMOTOR NEUROPATHY [None]
